FAERS Safety Report 19930863 (Version 8)
Quarter: 2022Q4

REPORT INFORMATION
  Report Type: Report from Study
  Country: CN (occurrence: CN)
  Receive Date: 20211008
  Receipt Date: 20221123
  Transmission Date: 20230112
  Serious: Yes (Hospitalization, Other)
  Sender: FDA-Public Use
  Company Number: CN-BRISTOL-MYERS SQUIBB COMPANY-BMS-2021-100980

PATIENT
  Age: 38 Year
  Sex: Female
  Weight: 59 kg

DRUGS (20)
  1. PACLITAXEL [Suspect]
     Active Substance: PACLITAXEL
     Indication: Breast cancer
     Dosage: THE MOST RECENT DOSE RECEIVED ON 15-SEP-2021.
     Route: 042
     Dates: start: 20210630
  2. CYCLOPHOSPHAMIDE [Suspect]
     Active Substance: CYCLOPHOSPHAMIDE
     Indication: Breast cancer
     Dosage: ON 26-NOV-2021, THE PATIENT RECEIVED HER LAST DOSE OF IV CYCLOPHOSPHAMIDE (737 MG) STUDY THERAPY.
     Route: 042
     Dates: start: 20210923
  3. EPIRUBICIN HYDROCHLORIDE [Suspect]
     Active Substance: EPIRUBICIN HYDROCHLORIDE
     Indication: Breast cancer
     Dosage: ON 26-NOV-2021, THE PATIENT RECEIVED HER LAST DOSE OF IV EPIRUBICIN (123 MG)
     Route: 042
     Dates: start: 20210923
  4. PHOSPHOLIPID [Concomitant]
     Active Substance: PHOSPHOLIPID
     Indication: Prophylaxis
     Route: 048
     Dates: start: 20210922, end: 20210930
  5. PHOSPHOLIPID [Concomitant]
     Active Substance: PHOSPHOLIPID
     Indication: Glutathione s-transferase increased
     Dosage: POLYENE PHOSPHATIDYLCHOLINE CAPSULES?ONGOING
     Route: 048
     Dates: start: 20210930
  6. APREPITANT [Concomitant]
     Active Substance: APREPITANT
     Indication: Prophylaxis
     Route: 048
     Dates: start: 20210923, end: 20210923
  7. APREPITANT [Concomitant]
     Active Substance: APREPITANT
     Route: 048
     Dates: start: 20210924, end: 20210925
  8. OMEPRAZOLE [Concomitant]
     Active Substance: OMEPRAZOLE
     Indication: Prophylaxis
     Dosage: OMEPRAZOLE SODIUM FOR INJECTION
     Route: 042
     Dates: start: 20210923, end: 20210923
  9. OMEPRAZOLE [Concomitant]
     Active Substance: OMEPRAZOLE
     Indication: Vomiting
     Dosage: FREQUENCY: QD/BID?OMEPRAZOLE ENTERIC-COATED CAPSULES
     Route: 048
     Dates: start: 20210929, end: 20211008
  10. PEGFILGRASTIM [Concomitant]
     Active Substance: PEGFILGRASTIM
     Indication: Leukopenia
     Dosage: THIOPEGFILGRASTIM
     Route: 058
     Dates: start: 20210924
  11. PALONOSETRON HYDROCHLORIDE [Concomitant]
     Active Substance: PALONOSETRON HYDROCHLORIDE
     Indication: Prophylaxis
     Dosage: PALONOSETRON HYDROCHLORIDE INJECTION
     Route: 042
     Dates: start: 20210915, end: 20210915
  12. PALONOSETRON HYDROCHLORIDE [Concomitant]
     Active Substance: PALONOSETRON HYDROCHLORIDE
     Dosage: PALONOSETRON HYDROCHLORIDE INJECTION
     Route: 042
     Dates: start: 20210923, end: 20210923
  13. EVE PAINKILLERS(IBUPROFEN) [Concomitant]
     Indication: Headache
     Dosage: EVEPAINKILLERS?1 DOSAGE= 2 UNITS NOS
     Route: 048
     Dates: start: 20210922, end: 20210922
  14. DEXAMETHASONE SODIUM PHOSPHATE [Concomitant]
     Active Substance: DEXAMETHASONE SODIUM PHOSPHATE
     Indication: Prophylaxis
     Dosage: DEXAMETHASONE SODIUM PHOSPHATE INJECTION
     Route: 042
     Dates: start: 20210915, end: 20210915
  15. DEXAMETHASONE SODIUM PHOSPHATE [Concomitant]
     Active Substance: DEXAMETHASONE SODIUM PHOSPHATE
     Dosage: DEXAMETHASONE SODIUM PHOSPHATE INJECTION
     Route: 042
     Dates: start: 20210923, end: 20210923
  16. DEXRAZOXANE [Concomitant]
     Active Substance: DEXRAZOXANE
     Indication: Prophylaxis
     Dosage: DEXRAZOXANE FOR INJECTION
     Route: 042
     Dates: start: 20210923, end: 20210923
  17. GRANISETRON [Concomitant]
     Active Substance: GRANISETRON
     Indication: Prophylaxis
     Dosage: GRANISETRON TRANSDERMAL PATCHES
     Route: 061
     Dates: start: 20210923, end: 20210923
  18. COMPOUND AMINO ACID INJECTION(18AA-) [Concomitant]
     Indication: Prophylaxis
     Dosage: COMPOUND AMINO ACID 18AA-II?DOSAGE= 250 UNITS NOS
     Route: 042
     Dates: start: 20210930, end: 20211008
  19. LEVOTHYROXINE SODIUM [Concomitant]
     Active Substance: LEVOTHYROXINE SODIUM
     Indication: Hypothyroidism
     Dosage: LEVOTHYROXINE SODIUM TABLETS
     Route: 048
     Dates: start: 20210930
  20. MECAPEGFILGRASTIM [Concomitant]
     Active Substance: MECAPEGFILGRASTIM
     Indication: Prophylaxis
     Dosage: THIOPEGFILGRASTIM
     Route: 058
     Dates: start: 20210924, end: 20210924

REACTIONS (2)
  - Febrile neutropenia [Recovered/Resolved]
  - Hyponatraemia [Recovered/Resolved]

NARRATIVE: CASE EVENT DATE: 20210930
